FAERS Safety Report 6804405-0 (Version None)
Quarter: 2010Q2

REPORT INFORMATION
  Report Type: 
  Country: None (occurrence: None)
  Receive Date: 20100628
  Receipt Date: 20070512
  Transmission Date: 20101027
  Serious: Yes (Other)
  Sender: FDA-Public Use
  Company Number: US-PFIZER INC-2007016422

PATIENT
  Sex: Male
  Weight: 59.4 kg

DRUGS (9)
  1. SUTENT [Suspect]
     Indication: METASTATIC RENAL CELL CARCINOMA
     Dosage: DAILY
     Dates: start: 20061109, end: 20070117
  2. NORVASC [Concomitant]
     Dosage: DAILY
  3. HYDROCHLOROTHIAZIDE [Concomitant]
     Dosage: DAILY
  4. MEGACE [Concomitant]
     Dosage: DAILY
  5. MS CONTIN [Concomitant]
  6. MORPHINE SULFATE [Concomitant]
     Dosage: 15-30 MG,EVERY 3 HOURS AS NEEDED
  7. PROTONIX [Concomitant]
     Dosage: DAILY
  8. ZOFRAN [Concomitant]
     Dosage: EVERY 12 HOURS AS NEEDED
  9. COMPAZINE [Concomitant]
     Dosage: EVERY 6 HOURS AS NEEDED

REACTIONS (4)
  - DISEASE PROGRESSION [None]
  - GASTROINTESTINAL HAEMORRHAGE [None]
  - HAEMOGLOBIN DECREASED [None]
  - METASTATIC RENAL CELL CARCINOMA [None]
